FAERS Safety Report 25428325 (Version 1)
Quarter: 2025Q2

REPORT INFORMATION
  Report Type: Spontaneous
  Country: FR (occurrence: FR)
  Receive Date: 20250612
  Receipt Date: 20250612
  Transmission Date: 20250717
  Serious: Yes (Hospitalization)
  Sender: HIKMA
  Company Number: None

PATIENT
  Age: 69 Year
  Sex: Male
  Weight: 57 kg

DRUGS (3)
  1. WARFARIN SODIUM [Suspect]
     Active Substance: WARFARIN SODIUM
     Indication: Atrial fibrillation
     Dosage: 1 DOSAGE FORM, QD
     Route: 048
     Dates: start: 20220204, end: 20250413
  2. INNOHEP [Suspect]
     Active Substance: TINZAPARIN SODIUM
     Indication: Anticoagulant therapy
     Dosage: 0.6 MILLILITER, QD
     Route: 058
     Dates: start: 20250414, end: 20250419
  3. METHYLPREDNISOLONE [Suspect]
     Active Substance: METHYLPREDNISOLONE
     Indication: Tendonitis
     Dosage: 40 MILLILITER, QD
     Route: 030
     Dates: start: 20250414, end: 20250419

REACTIONS (1)
  - Haematoma [Recovered/Resolved]

NARRATIVE: CASE EVENT DATE: 20250420
